FAERS Safety Report 10013101 (Version 1)
Quarter: 2014Q1

REPORT INFORMATION
  Report Type: Spontaneous
  Country: JP (occurrence: JP)
  Receive Date: 20140314
  Receipt Date: 20140314
  Transmission Date: 20141002
  Serious: Yes (Other)
  Sender: FDA-Public Use
  Company Number: JP-B.I. PHARMACEUTICALS,INC./RIDGEFIELD-2014-BI-10878NB

PATIENT
  Age: 78 Year
  Sex: Male
  Weight: 65.8 kg

DRUGS (4)
  1. PRAZAXA [Suspect]
     Indication: ATRIAL FIBRILLATION
     Dosage: 220 MG
     Route: 048
  2. NEXIUM [Concomitant]
     Route: 048
  3. BLOPRESS [Concomitant]
     Route: 048
  4. FEBURIC [Concomitant]
     Route: 048

REACTIONS (1)
  - Embolic stroke [Unknown]
